FAERS Safety Report 15150503 (Version 1)
Quarter: 2018Q3

REPORT INFORMATION
  Report Type: Spontaneous
  Country: IN (occurrence: IN)
  Receive Date: 20180716
  Receipt Date: 20180716
  Transmission Date: 20181010
  Serious: Yes (Other)
  Sender: FDA-Public Use
  Company Number: IN-MYLANLABS-2018M1051192

PATIENT
  Age: 18 Year
  Sex: Male

DRUGS (3)
  1. IRINOTECAN [Suspect]
     Active Substance: IRINOTECAN
     Indication: COLORECTAL CANCER
     Dosage: FOLFIRI REGIMEN 10 CYCLES GIVEN EVERY TWO WEEKS
     Route: 065
  2. FOLINIC ACID [Suspect]
     Active Substance: LEUCOVORIN
     Indication: COLORECTAL CANCER
     Dosage: FOLFIRI REGIMEN 10 CYCLES GIVEN EVERY TWO WEEKS
     Route: 065
  3. FLUOROURACIL. [Suspect]
     Active Substance: FLUOROURACIL
     Indication: COLORECTAL CANCER
     Dosage: FOLFIRI REGIMEN 10 CYCLES GIVEN EVERY TWO WEEKS
     Route: 065

REACTIONS (1)
  - Posterior reversible encephalopathy syndrome [Recovered/Resolved]
